FAERS Safety Report 6940243-6 (Version None)
Quarter: 2010Q3

REPORT INFORMATION
  Report Type: 
  Country: None (occurrence: None)
  Receive Date: 20100825
  Receipt Date: 20100813
  Transmission Date: 20110219
  Serious: Yes (Other)
  Sender: FDA-Public Use
  Company Number: US-ELI_LILLY_AND_COMPANY-US201008004503

PATIENT
  Sex: Male

DRUGS (2)
  1. HUMULIN N [Suspect]
  2. HUMALOG [Suspect]

REACTIONS (4)
  - AGITATION [None]
  - HYPOACUSIS [None]
  - MYOCARDIAL INFARCTION [None]
  - VASCULAR GRAFT [None]
